FAERS Safety Report 7374902-0 (Version None)
Quarter: 2011Q1

REPORT INFORMATION
  Report Type: 
  Country: None (occurrence: None)
  Receive Date: 20110325
  Receipt Date: 20110323
  Transmission Date: 20110831
  Serious: Yes (Other)
  Sender: FDA-Public Use
  Company Number: US-PERRIGO-10US009291

PATIENT
  Sex: Male
  Weight: 34.014 kg

DRUGS (1)
  1. JUNIOR STRENGTH IBUPROFEN [Suspect]
     Indication: INFLUENZA
     Dosage: 300 MG, SINGLE
     Route: 048
     Dates: start: 20100429, end: 20100429

REACTIONS (5)
  - OROPHARYNGEAL PAIN [None]
  - MALAISE [None]
  - THROAT TIGHTNESS [None]
  - VOMITING [None]
  - ANAPHYLACTIC REACTION [None]
